FAERS Safety Report 6858842-9 (Version None)
Quarter: 2010Q3

REPORT INFORMATION
  Report Type: 
  Country: None (occurrence: None)
  Receive Date: 20100719
  Receipt Date: 20080303
  Transmission Date: 20110219
  Serious: Yes (Other)
  Sender: FDA-Public Use
  Company Number: US-PFIZER INC-2008015582

PATIENT
  Sex: Male
  Weight: 82.272 kg

DRUGS (1)
  1. CHANTIX [Suspect]
     Indication: SMOKING CESSATION THERAPY
     Dates: start: 20080129, end: 20080130

REACTIONS (6)
  - ANXIETY [None]
  - DYSPNOEA [None]
  - FEELING ABNORMAL [None]
  - FORMICATION [None]
  - LOSS OF CONSCIOUSNESS [None]
  - NERVOUSNESS [None]
